FAERS Safety Report 6555004-X (Version None)
Quarter: 2010Q1

REPORT INFORMATION
  Report Type: 
  Country: None (occurrence: None)
  Receive Date: 20100126
  Receipt Date: 20100126
  Transmission Date: 20100710
  Serious: Yes (Other)
  Sender: FDA-Public Use
  Company Number: None

PATIENT
  Age: 53 Year
  Sex: Female
  Weight: 55.7924 kg

DRUGS (1)
  1. NADOLOL [Suspect]
     Indication: MIGRAINE PROPHYLAXIS
     Dosage: 80MG DAILY PO
     Route: 048
     Dates: start: 20091215, end: 20100125

REACTIONS (2)
  - HYPOAESTHESIA [None]
  - POOR PERIPHERAL CIRCULATION [None]
